FAERS Safety Report 14719445 (Version 2)
Quarter: 2018Q2

REPORT INFORMATION
  Report Type: Report from Study
  Country: IE (occurrence: IE)
  Receive Date: 20180405
  Receipt Date: 20180416
  Transmission Date: 20180711
  Serious: Yes (Other)
  Sender: FDA-Public Use
  Company Number: IE-TAKEDA-2018MPI003486

PATIENT
  Sex: Male

DRUGS (21)
  1. ESCITALOPRAM [Concomitant]
     Active Substance: ESCITALOPRAM OXALATE
     Dosage: 10 MG, QD
     Route: 050
  2. LERCANIDIPINE [Concomitant]
     Active Substance: LERCANIDIPINE
     Dosage: 20 MG, QD
     Route: 050
  3. MIRTAZAPIN [Concomitant]
     Active Substance: MIRTAZAPINE
     Dosage: 15 MG, UNK
     Route: 050
  4. TAMSULOSIN [Concomitant]
     Active Substance: TAMSULOSIN
     Dosage: 400 UG, QD
     Route: 050
  5. TRAMADOL                           /00599202/ [Concomitant]
     Active Substance: TRAMADOL
     Dosage: 50 MG, QD
     Route: 050
  6. VALOTIX [Concomitant]
     Dosage: 500 MG, BID
     Route: 050
  7. ENDOXANA [Concomitant]
     Active Substance: CYCLOPHOSPHAMIDE
     Dosage: 500 MG, 1/WEEK
     Route: 050
  8. FUROSEMIDE. [Concomitant]
     Active Substance: FUROSEMIDE
     Dosage: 4 MG, QD
     Route: 050
  9. BISOPROLOL [Concomitant]
     Active Substance: BISOPROLOL
     Dosage: 1.25 MG, QD
     Route: 050
  10. DELTACORTRIL [Concomitant]
     Active Substance: PREDNISOLONE
     Dosage: 40 MG, QD
     Route: 050
  11. PANTOPRAZOLE [Concomitant]
     Active Substance: PANTOPRAZOLE
     Dosage: 40 MG, QD
     Route: 050
  12. AMITRIPTYLENE [Concomitant]
     Active Substance: AMITRIPTYLINE
     Dosage: 10 MG, QD
     Route: 050
  13. NEORECORMON [Concomitant]
     Active Substance: ERYTHROPOIETIN
     Dosage: 10000 IU, UNK
     Route: 050
  14. CLARITHROMYCIN. [Concomitant]
     Active Substance: CLARITHROMYCIN
     Dosage: 500 MG, BID
     Route: 050
  15. VELCADE [Suspect]
     Active Substance: BORTEZOMIB
     Indication: PLASMA CELL MYELOMA
     Dosage: 0.7 MG/M2, UNK
     Route: 058
     Dates: start: 20171128
  16. CYCLOPHOSPHAMIDE. [Concomitant]
     Active Substance: CYCLOPHOSPHAMIDE
     Dosage: 600 MG, UNK
     Route: 050
  17. ALLOPURINOL. [Concomitant]
     Active Substance: ALLOPURINOL
     Dosage: 300 MG, QD
     Route: 050
  18. DIOCTYL [Concomitant]
     Active Substance: DOCUSATE SODIUM
     Dosage: 100 MG, BID
     Route: 050
  19. DEXAMETHASONE. [Concomitant]
     Active Substance: DEXAMETHASONE
     Dosage: 10 MG, UNK
     Route: 050
  20. NSA [Concomitant]
     Active Substance: UNSPECIFIED INGREDIENT
     Dosage: 75 MG, QD
     Route: 050
  21. SEPTRIN [Concomitant]
     Active Substance: SULFAMETHOXAZOLE\TRIMETHOPRIM
     Dosage: UNK
     Route: 050

REACTIONS (3)
  - Fatigue [Not Recovered/Not Resolved]
  - Asthenia [Not Recovered/Not Resolved]
  - Transfusion [Unknown]
